FAERS Safety Report 5746582-9 (Version None)
Quarter: 2008Q2

REPORT INFORMATION
  Report Type: 
  Country: None (occurrence: None)
  Receive Date: 20080522
  Receipt Date: 20080520
  Transmission Date: 20081010
  Serious: Yes (Other)
  Sender: FDA-Public Use
  Company Number: US-MERCK-0805USA01385

PATIENT
  Age: 64 Year
  Sex: Female

DRUGS (3)
  1. SINGULAIR [Suspect]
     Indication: HYPERSENSITIVITY
     Route: 048
     Dates: start: 20070326
  2. VYTORIN [Concomitant]
     Route: 048
  3. CHOLECALCIFEROL [Concomitant]
     Route: 065

REACTIONS (1)
  - SUICIDAL IDEATION [None]
